FAERS Safety Report 21733434 (Version 2)
Quarter: 2023Q1

REPORT INFORMATION
  Report Type: Spontaneous
  Country: IT (occurrence: IT)
  Receive Date: 20221215
  Receipt Date: 20230127
  Transmission Date: 20230418
  Serious: Yes (Death, Other)
  Sender: FDA-Public Use
  Company Number: IT-PFM-2022-08719

PATIENT

DRUGS (8)
  1. PROPRANOLOL [Suspect]
     Active Substance: PROPRANOLOL HYDROCHLORIDE
     Indication: Off label use
     Dosage: UNK
     Route: 065
  2. PROPRANOLOL [Suspect]
     Active Substance: PROPRANOLOL HYDROCHLORIDE
     Indication: Duodenal varices
  3. FUROSEMIDE [Suspect]
     Active Substance: FUROSEMIDE
     Indication: Duodenal varices
     Dosage: UNK
     Route: 065
  4. SPIRONOLACTONE [Suspect]
     Active Substance: SPIRONOLACTONE
     Indication: Duodenal varices
     Dosage: UNK
     Route: 065
  5. PANTOPRAZOLE [Suspect]
     Active Substance: PANTOPRAZOLE
     Indication: Duodenal varices
     Dosage: UNK
     Route: 065
  6. LACTULOSE [Suspect]
     Active Substance: LACTULOSE
     Indication: Duodenal varices
     Dosage: UNK
     Route: 065
  7. OCTREOTIDE [Suspect]
     Active Substance: OCTREOTIDE
     Indication: Duodenal varices
     Dosage: UNK
     Route: 065
  8. ALBUMIN HUMAN [Suspect]
     Active Substance: ALBUMIN HUMAN
     Indication: Duodenal varices
     Dosage: UNK
     Route: 042

REACTIONS (5)
  - Multiple organ dysfunction syndrome [Fatal]
  - Septic shock [Unknown]
  - Product use in unapproved indication [Unknown]
  - Product use issue [Unknown]
  - Off label use [Unknown]
